FAERS Safety Report 14314958 (Version 1)
Quarter: 2017Q4

REPORT INFORMATION
  Report Type: Spontaneous
  Country: SI (occurrence: SI)
  Receive Date: 20171221
  Receipt Date: 20171221
  Transmission Date: 20180321
  Serious: Yes (Hospitalization, Other)
  Sender: FDA-Public Use
  Company Number: SI-JNJFOC-20171223491

PATIENT
  Age: 72 Year
  Sex: Male

DRUGS (1)
  1. XARELTO [Suspect]
     Active Substance: RIVAROXABAN
     Indication: ATRIAL FIBRILLATION
     Route: 048

REACTIONS (3)
  - Cardiac ventricular thrombosis [Unknown]
  - Acute myocardial infarction [Unknown]
  - Ventricular hypokinesia [Unknown]

NARRATIVE: CASE EVENT DATE: 201707
